FAERS Safety Report 4494486-4 (Version None)
Quarter: 2004Q4

REPORT INFORMATION
  Report Type: 
  Country: None (occurrence: None)
  Receive Date: 20041102
  Receipt Date: 20041020
  Transmission Date: 20050328
  Serious: Yes (Hospitalization)
  Sender: FDA-Public Use
  Company Number: 2004082356

PATIENT
  Age: 89 Year
  Sex: Female

DRUGS (7)
  1. PHENYTOIN [Suspect]
     Indication: CONVULSION
     Dosage: 200 MG (200 MG, 1 IN 1 D), ORAL
     Route: 048
     Dates: start: 20040930, end: 20041005
  2. PROMAZINE HCL [Concomitant]
  3. SUDOCREM (BENZYL ALCOHOL, BENZYL BENOZOATE, BENZYL CINNAMATE, LANOLIN, [Concomitant]
  4. SENNA FRUIT (SENNA FRUIT) [Concomitant]
  5. LANSOPRAZOLE [Concomitant]
  6. LEVOTHYROXINE SODIUM [Concomitant]
  7. LACTULOSE [Concomitant]

REACTIONS (3)
  - BLISTER [None]
  - RASH ERYTHEMATOUS [None]
  - URINARY TRACT INFECTION [None]
